FAERS Safety Report 6086746-0 (Version None)
Quarter: 2009Q1

REPORT INFORMATION
  Report Type: 
  Country: None (occurrence: None)
  Receive Date: 20090217
  Receipt Date: 20090202
  Transmission Date: 20090719
  Serious: Yes (Death)
  Sender: FDA-Public Use
  Company Number: CHPA2009US01772

PATIENT
  Age: 51 Year
  Sex: Female

DRUGS (1)
  1. ASPIRIN [Suspect]
     Dosage: 80 TABS UNK ORAL
     Route: 048

REACTIONS (24)
  - ACTIVATED PARTIAL THROMBOPLASTIN TIME PROLONGED [None]
  - ANION GAP INCREASED [None]
  - BLOOD BICARBONATE DECREASED [None]
  - BLOOD PH INCREASED [None]
  - BLOOD PRESSURE DIASTOLIC DECREASED [None]
  - BLOOD PRESSURE INCREASED [None]
  - COMPLETED SUICIDE [None]
  - CONFUSIONAL STATE [None]
  - CONVULSION [None]
  - DRUG LEVEL ABOVE THERAPEUTIC [None]
  - ERYTHEMA [None]
  - FLUSHING [None]
  - GASTROINTESTINAL SOUNDS ABNORMAL [None]
  - HAEMODIALYSIS [None]
  - HYPERVENTILATION [None]
  - HYPOTENSION [None]
  - INTERNATIONAL NORMALISED RATIO INCREASED [None]
  - OVERDOSE [None]
  - PALPITATIONS [None]
  - PCO2 DECREASED [None]
  - PO2 INCREASED [None]
  - PROTHROMBIN TIME PROLONGED [None]
  - TACHYCARDIA [None]
  - TACHYPNOEA [None]
